FAERS Safety Report 21147418 (Version 4)
Quarter: 2022Q3

REPORT INFORMATION
  Report Type: Spontaneous
  Country: US (occurrence: US)
  Receive Date: 20220729
  Receipt Date: 20220920
  Transmission Date: 20221026
  Serious: No
  Sender: FDA-Public Use
  Company Number: US-PFIZER INC-PV202200023515

PATIENT
  Age: 8 Year
  Sex: Male
  Weight: 19.5 kg

DRUGS (6)
  1. GENOTROPIN [Suspect]
     Active Substance: SOMATROPIN
     Indication: Neuroblastoma
     Dosage: 0.6 MG, 1X/DAY
     Route: 058
     Dates: start: 20220706
  2. GENOTROPIN [Suspect]
     Active Substance: SOMATROPIN
     Indication: Growth disorder
  3. GENOTROPIN [Suspect]
     Active Substance: SOMATROPIN
     Indication: Acute lymphocytic leukaemia
  4. MONTELUKAST [Concomitant]
     Active Substance: MONTELUKAST SODIUM
     Indication: Sleep disorder
     Dosage: 5 MG, 1X/DAY (IN THE EVENING)
     Route: 048
     Dates: start: 2021
  5. DAIRY RELIEF [Concomitant]
     Indication: Lactose intolerance
     Dosage: UNK, AS NEEDED
     Dates: start: 2022
  6. MOMETASONE FUROATE [Concomitant]
     Active Substance: MOMETASONE FUROATE
     Indication: Sleep disorder
     Dosage: UNK (1 SQUIRT PER NOSTRIL)

REACTIONS (2)
  - Wrong technique in device usage process [Unknown]
  - Drug dose omission by device [Unknown]

NARRATIVE: CASE EVENT DATE: 20220701
